FAERS Safety Report 5057326-0 (Version None)
Quarter: 2006Q3

REPORT INFORMATION
  Report Type: 
  Country: None (occurrence: None)
  Receive Date: 20060721
  Receipt Date: 20050810
  Transmission Date: 20061208
  Serious: No
  Sender: FDA-Public Use
  Company Number: US-GLAXOSMITHKLINE-A0569699A

PATIENT
  Age: 50 Year
  Sex: Female

DRUGS (10)
  1. AVANDIA [Suspect]
     Dosage: 4MG TWICE PER DAY
     Route: 048
     Dates: start: 20050101, end: 20050701
  2. GLUCOTROL [Concomitant]
  3. SYNTHROID [Concomitant]
  4. WELLBUTRIN [Concomitant]
  5. PREVACID [Concomitant]
  6. NEURONTIN [Concomitant]
  7. NEURONTIN [Concomitant]
  8. LASIX [Concomitant]
  9. LEXAPRO [Concomitant]
  10. ASPIRIN [Concomitant]

REACTIONS (2)
  - ALOPECIA [None]
  - BLOOD GLUCOSE DECREASED [None]
